FAERS Safety Report 7212628-4 (Version None)
Quarter: 2010Q4

REPORT INFORMATION
  Report Type: 
  Country: None (occurrence: None)
  Receive Date: 20101227
  Receipt Date: 20101213
  Transmission Date: 20110411
  Serious: Yes (Death, Hospitalization)
  Sender: FDA-Public Use
  Company Number: 08-176

PATIENT
  Age: 85 Year
  Sex: Male
  Weight: 59.8748 kg

DRUGS (13)
  1. FAZACLO ODT [Suspect]
     Indication: DEMENTIA
     Dosage: 25 MG PO DAILY
     Route: 048
     Dates: start: 20070730, end: 20080106
  2. ALBUTEROL [Concomitant]
  3. ARICEPT [Concomitant]
  4. CITALOPRAM HYDROBROMIDE [Concomitant]
  5. CARDURA [Concomitant]
  6. LASIX [Concomitant]
  7. HALDOL [Concomitant]
  8. RITALIN [Concomitant]
  9. PROTONIX [Concomitant]
  10. NOVOLOG SLIDING SCALE [Concomitant]
  11. POTASSIUM CHLORIDE [Concomitant]
  12. METAMUCIL-2 [Concomitant]
  13. DURAGESIC-100 [Concomitant]

REACTIONS (4)
  - CHRONIC OBSTRUCTIVE PULMONARY DISEASE [None]
  - FALL [None]
  - HEAD INJURY [None]
  - HIP FRACTURE [None]
